FAERS Safety Report 5248873-7 (Version None)
Quarter: 2007Q1

REPORT INFORMATION
  Report Type: 
  Country: None (occurrence: None)
  Receive Date: 20070228
  Receipt Date: 20060329
  Transmission Date: 20070707
  Serious: No
  Sender: FDA-Public Use
  Company Number: US-GLAXOSMITHKLINE-A0599543A

PATIENT
  Age: 74 Year
  Sex: Male

DRUGS (4)
  1. VALTREX [Suspect]
     Dosage: 1G THREE TIMES PER DAY
     Route: 048
     Dates: start: 20060301
  2. GLUCOSAMINE + CHONDROITIN [Concomitant]
  3. MSN [Concomitant]
  4. ECHINACEA [Concomitant]

REACTIONS (3)
  - BACK PAIN [None]
  - DECREASED APPETITE [None]
  - DRUG INEFFECTIVE [None]
